FAERS Safety Report 5221779-5 (Version None)
Quarter: 2007Q1

REPORT INFORMATION
  Report Type: 
  Country: None (occurrence: None)
  Receive Date: 20070129
  Receipt Date: 20070118
  Transmission Date: 20070707
  Serious: Yes (Other)
  Sender: FDA-Public Use
  Company Number: SE-JNJFOC-20070104459

PATIENT
  Age: 46 Year
  Sex: Female

DRUGS (14)
  1. REMICADE [Suspect]
     Indication: PSORIATIC ARTHROPATHY
     Route: 042
  2. METOJECT [Suspect]
     Indication: SACROILIITIS
     Route: 065
  3. METOJECT [Suspect]
     Indication: PSORIATIC ARTHROPATHY
     Route: 065
  4. ENBREL [Suspect]
     Indication: PSORIATIC ARTHROPATHY
     Route: 065
  5. INSULATARD NPH HUMAN [Concomitant]
     Route: 065
  6. LIPITOR [Concomitant]
     Route: 065
  7. FOLACIN [Concomitant]
     Route: 065
  8. PANODIL [Concomitant]
     Route: 065
  9. RINOMAR [Concomitant]
     Route: 065
  10. GLUCOPHAGE [Concomitant]
     Route: 065
  11. TROMBYL [Concomitant]
     Route: 065
  12. ORUDIS RETARD [Concomitant]
     Route: 065
  13. NAVOBAN [Concomitant]
     Route: 065
  14. NASONEX [Concomitant]
     Route: 065

REACTIONS (1)
  - BREAST CANCER FEMALE [None]
